FAERS Safety Report 9115793 (Version 2)
Quarter: 2014Q1

REPORT INFORMATION
  Report Type: Report from Study
  Country: DE (occurrence: DE)
  Receive Date: 20130224
  Receipt Date: 20140212
  Transmission Date: 20141002
  Serious: Yes (Other)
  Sender: FDA-Public Use
  Company Number: PHHY2012DE101556

PATIENT
  Sex: Female

DRUGS (2)
  1. FTY 720 [Suspect]
     Dosage: 0.5 MG, DAILY
     Route: 048
     Dates: start: 20110905, end: 201306
  2. AMINEURIN [Concomitant]
     Dosage: 25 MG, UNK
     Dates: start: 20090825

REACTIONS (3)
  - Pancreatic cyst [Not Recovered/Not Resolved]
  - Amylase increased [Unknown]
  - Lipase increased [Unknown]
